FAERS Safety Report 8638403 (Version 15)
Quarter: 2014Q4

REPORT INFORMATION
  Report Type: Spontaneous
  Country: US (occurrence: US)
  Receive Date: 20120627
  Receipt Date: 20141212
  Transmission Date: 20150529
  Serious: Yes (Hospitalization, Other)
  Sender: FDA-Public Use
  Company Number: US-GLAXOSMITHKLINE-A0982389A

PATIENT
  Age: 48 Year
  Sex: Female

DRUGS (7)
  1. FLOLAN [Suspect]
     Active Substance: EPOPROSTENOL SODIUM
     Indication: COR PULMONALE CHRONIC
     Dosage: 20 NG/KG/MINDOSE: 24 NG/KG/MIN, CONC: 30,000 NG/ML, PUMP RATE 93 ML/DAY, VIAL STRENGTH: 1.5 MG
     Route: 042
     Dates: start: 20071231
  2. FLOLAN [Suspect]
     Active Substance: EPOPROSTENOL SODIUM
     Dosage: 24 UNK, UNK
  3. FLOLAN [Suspect]
     Active Substance: EPOPROSTENOL SODIUM
     Indication: PULMONARY HYPERTENSION
     Dosage: UNK
     Dates: start: 20071231
  4. FLOLAN [Suspect]
     Active Substance: EPOPROSTENOL SODIUM
     Dosage: UNK
     Dates: start: 20071231
  5. FLOLAN [Suspect]
     Active Substance: EPOPROSTENOL SODIUM
     Dosage: 24
  6. FLOLAN [Suspect]
     Active Substance: EPOPROSTENOL SODIUM
     Dosage: 24 NG/KG/MIN. CONTINUOUS; CONCENTRATION: 30,000 NG/ML; PUMP RATE: 93 ML/DAY; VIAL STRENGTH: 1.5 MG
     Dates: start: 20080117
  7. FLOLAN [Suspect]
     Active Substance: EPOPROSTENOL SODIUM
     Dosage: UNK
     Dates: start: 20071231

REACTIONS (20)
  - Renal failure [Unknown]
  - Drug dose omission [Unknown]
  - Chest pain [Unknown]
  - Catheter site pruritus [Unknown]
  - Infusion site pain [Unknown]
  - Device alarm issue [Unknown]
  - Medical device complication [Not Recovered/Not Resolved]
  - Infusion site swelling [Unknown]
  - Infection [Unknown]
  - Catheter site infection [Unknown]
  - Catheter site haemorrhage [Not Recovered/Not Resolved]
  - Catheter site swelling [Not Recovered/Not Resolved]
  - Vascular occlusion [Not Recovered/Not Resolved]
  - Hyperhidrosis [Unknown]
  - Infusion site erythema [Unknown]
  - Skin abrasion [Not Recovered/Not Resolved]
  - Device related infection [Unknown]
  - Swelling face [Unknown]
  - Embolism [Unknown]
  - Pruritus [Unknown]

NARRATIVE: CASE EVENT DATE: 20120820
